FAERS Safety Report 17896213 (Version 2)
Quarter: 2020Q2

REPORT INFORMATION
  Report Type: Spontaneous
  Country: US (occurrence: US)
  Receive Date: 20200615
  Receipt Date: 20200617
  Transmission Date: 20200714
  Serious: Yes (Death)
  Sender: FDA-Public Use
  Company Number: US-PFIZER INC-2020174134

PATIENT
  Age: 39 Year
  Sex: Male

DRUGS (1)
  1. CAMPTOSAR [Suspect]
     Active Substance: IRINOTECAN HYDROCHLORIDE
     Indication: RECTAL CANCER
     Dosage: 100 MG, CYCLIC (14 D PER 28D CYCLE)

REACTIONS (1)
  - Death [Fatal]

NARRATIVE: CASE EVENT DATE: 20200606
